FAERS Safety Report 17241154 (Version 2)
Quarter: 2020Q1

REPORT INFORMATION
  Report Type: Spontaneous
  Country: BR (occurrence: BR)
  Receive Date: 20200107
  Receipt Date: 20200220
  Transmission Date: 20200409
  Serious: Yes (Other)
  Sender: FDA-Public Use
  Company Number: BR-GLAXOSMITHKLINE-BR2020AMR002233

PATIENT
  Age: 73 Year
  Sex: Male
  Weight: 63 kg

DRUGS (1)
  1. WELLBUTRIN XL [Suspect]
     Active Substance: BUPROPION HYDROCHLORIDE
     Indication: SMOKING CESSATION THERAPY
     Dosage: 1 DF, QD
     Dates: start: 201908

REACTIONS (8)
  - Myocardial infarction [Recovered/Resolved]
  - Product use in unapproved indication [Unknown]
  - Hypophagia [Unknown]
  - Product prescribing issue [Unknown]
  - Weight decreased [Recovering/Resolving]
  - Depression [Unknown]
  - Cerebrovascular accident [Recovering/Resolving]
  - Speech disorder [Unknown]
